FAERS Safety Report 8008872-9 (Version None)
Quarter: 2011Q4

REPORT INFORMATION
  Report Type: 
  Country: None (occurrence: None)
  Receive Date: 20111227
  Receipt Date: 20111222
  Transmission Date: 20120403
  Serious: Yes (Hospitalization)
  Sender: FDA-Public Use
  Company Number: US-B.I. PHARMACEUTICALS,INC./RIDGEFIELD-2011-BP-22715BP

PATIENT
  Sex: Female

DRUGS (16)
  1. FUROSEMIDE [Concomitant]
  2. SUMATRIPTAN SUCCINATE [Concomitant]
  3. NASACORT AQ [Concomitant]
  4. DILTIAZEM CD [Concomitant]
  5. LEVOXYL [Concomitant]
  6. HYDROXYCHLOROQUINE SULFATE [Concomitant]
  7. LAMICTAL [Concomitant]
  8. PRADAXA [Suspect]
     Dosage: 300 MG
  9. COUMADIN [Concomitant]
  10. DIOVAN [Concomitant]
  11. MECLIZINE [Concomitant]
  12. BUPROPION HCL [Concomitant]
  13. MAXAIR [Concomitant]
     Route: 055
  14. COUMADIN [Concomitant]
     Dosage: 10 MG
  15. POTASSIUM CHLORIDE ER [Concomitant]
  16. ADVAIR DISKUS 100/50 [Concomitant]

REACTIONS (1)
  - TRANSIENT ISCHAEMIC ATTACK [None]
